FAERS Safety Report 17654139 (Version 1)
Quarter: 2020Q2

REPORT INFORMATION
  Report Type: Spontaneous
  Country: CH (occurrence: CH)
  Receive Date: 20200410
  Receipt Date: 20200410
  Transmission Date: 20200713
  Serious: Yes (Congenital Anomaly, Other)
  Sender: FDA-Public Use
  Company Number: CH-MICRO LABS LIMITED-ML2020-01166

PATIENT

DRUGS (7)
  1. OMEPRAZOLE. [Suspect]
     Active Substance: OMEPRAZOLE
     Route: 064
  2. VALPROATE [Suspect]
     Active Substance: VALPROIC ACID
     Route: 064
  3. CYCLOPHOSPHAMIDE. [Suspect]
     Active Substance: CYCLOPHOSPHAMIDE
     Route: 064
  4. ALPRAZOLAM. [Suspect]
     Active Substance: ALPRAZOLAM
     Route: 064
  5. LEVOFLOXACIN. [Suspect]
     Active Substance: LEVOFLOXACIN
     Route: 064
  6. SALMETEROL [Suspect]
     Active Substance: SALMETEROL
     Route: 064
  7. PREDNISONE. [Suspect]
     Active Substance: PREDNISONE
     Route: 064

REACTIONS (3)
  - Ectrodactyly [Unknown]
  - Syndactyly [Unknown]
  - Foetal exposure during pregnancy [Unknown]
